FAERS Safety Report 26099957 (Version 1)
Quarter: 2025Q4

REPORT INFORMATION
  Report Type: Spontaneous
  Country: EU (occurrence: EU)
  Receive Date: 20251128
  Receipt Date: 20251128
  Transmission Date: 20260118
  Serious: Yes (Life-Threatening, Hospitalization, Other)
  Sender: AUROBINDO
  Company Number: EU-CHEPLA-2025012859

PATIENT
  Age: 54 Year
  Sex: Female

DRUGS (9)
  1. AMLODIPINE [Suspect]
     Active Substance: AMLODIPINE BESYLATE
     Indication: Hypertension
     Dosage: 10 MILLIGRAM, DAILY
     Route: 065
  2. DOXAZOSIN [Suspect]
     Active Substance: DOXAZOSIN MESYLATE
     Indication: Hypertension
     Dosage: 8 MG TWICE A DAY
     Route: 065
  3. DOXAZOSIN [Suspect]
     Active Substance: DOXAZOSIN MESYLATE
     Dosage: 4 MILLIGRAM, ONCE A DAY (DECREASING DOSE TO 4MG 2X1)
     Route: 065
  4. NEBIVOLOL [Suspect]
     Active Substance: NEBIVOLOL
     Indication: Hypertension
     Dosage: 10 MILLIGRAM, DAILY
     Route: 065
  5. TORSEMIDE [Suspect]
     Active Substance: TORSEMIDE
     Indication: Hypertension
     Dosage: UNK
     Route: 065
  6. TORSEMIDE [Suspect]
     Active Substance: TORSEMIDE
     Dosage: UNK (INCREASED UP TO 20 MG DAILY)
     Route: 065
  7. METHYLDOPA [Suspect]
     Active Substance: METHYLDOPA
     Indication: Hypertension
     Dosage: 250 MILLIGRAM, 3 TIMES A DAY
     Route: 065
  8. URAPIDIL [Suspect]
     Active Substance: URAPIDIL
     Indication: Hypertension
     Dosage: UNK (10 MG TO 25 MG PER HOUR)
  9. URAPIDIL [Suspect]
     Active Substance: URAPIDIL
     Dosage: UNK (USED AGAIN FOR 48 HOURS)

REACTIONS (15)
  - End stage renal disease [Recovering/Resolving]
  - Vascular stent thrombosis [Unknown]
  - Haematochezia [Recovering/Resolving]
  - Pancreatitis acute [Recovering/Resolving]
  - Abdominal pain [Recovering/Resolving]
  - Nausea [Recovering/Resolving]
  - Vomiting [Recovering/Resolving]
  - Skin lesion [Recovering/Resolving]
  - Leukocytosis [Recovering/Resolving]
  - Haemoglobin decreased [Recovering/Resolving]
  - Inflammatory marker increased [Recovering/Resolving]
  - Leukocyturia [Recovering/Resolving]
  - Dieulafoy^s vascular malformation [Recovering/Resolving]
  - Chronic gastritis [Recovering/Resolving]
  - Escherichia infection [Recovering/Resolving]
